FAERS Safety Report 9569918 (Version 2)
Quarter: 2013Q3

REPORT INFORMATION
  Report Type: Spontaneous
  Country: US (occurrence: US)
  Receive Date: 20130930
  Receipt Date: 20130930
  Transmission Date: 20140515
  Serious: No
  Sender: FDA-Public Use
  Company Number: US-AMGEN-USASP2013054746

PATIENT
  Age: 46 Year
  Sex: Female
  Weight: 99.77 kg

DRUGS (2)
  1. ENBREL [Suspect]
     Indication: PSORIATIC ARTHROPATHY
     Dosage: 50 MG, 2 TIMES/WK
     Route: 058
     Dates: start: 20130614, end: 20130801
  2. ENBREL [Suspect]
     Indication: PSORIASIS

REACTIONS (6)
  - Cough [Not Recovered/Not Resolved]
  - Headache [Recovered/Resolved]
  - Sinus headache [Not Recovered/Not Resolved]
  - Hyperhidrosis [Recovered/Resolved]
  - Vision blurred [Recovered/Resolved]
  - Hypertension [Recovered/Resolved]
